FAERS Safety Report 7248534-9 (Version None)
Quarter: 2011Q1

REPORT INFORMATION
  Report Type: 
  Country: None (occurrence: None)
  Receive Date: 20110127
  Receipt Date: 20110118
  Transmission Date: 20110831
  Serious: Yes (Other)
  Sender: FDA-Public Use
  Company Number: US-ALLERGAN-1100705US

PATIENT
  Age: 60 Year
  Sex: Female

DRUGS (2)
  1. RESTASIS [Suspect]
     Indication: DRY EYE
     Dosage: 1 GTT, BID
     Route: 047
     Dates: start: 20101201
  2. RESTASIS [Suspect]
     Indication: CATARACT

REACTIONS (9)
  - FOREIGN BODY SENSATION IN EYES [None]
  - EYE PAIN [None]
  - EYE DISCHARGE [None]
  - VISION BLURRED [None]
  - EYE SWELLING [None]
  - EYE IRRITATION [None]
  - PARANASAL SINUS HYPERSECRETION [None]
  - OCULAR HYPERAEMIA [None]
  - LACRIMATION INCREASED [None]
